FAERS Safety Report 6793466-3 (Version None)
Quarter: 2010Q2

REPORT INFORMATION
  Report Type: 
  Country: None (occurrence: None)
  Receive Date: 20100624
  Receipt Date: 20100326
  Transmission Date: 20101027
  Serious: Yes (Death)
  Sender: FDA-Public Use
  Company Number: US-MYLANLABS-2010S1005360

PATIENT
  Age: 45 Year
  Sex: Male

DRUGS (6)
  1. CLOZAPINE [Suspect]
     Indication: SCHIZOPHRENIA, PARANOID TYPE
     Dates: start: 20090527, end: 20100313
  2. CLOZAPINE [Suspect]
     Dates: start: 20090527, end: 20100313
  3. COGENTIN [Concomitant]
  4. BENADRYL [Concomitant]
  5. KLONOPIN [Concomitant]
  6. PROLIXIN DECANOATE [Concomitant]

REACTIONS (1)
  - DEATH [None]
